FAERS Safety Report 4672921-6 (Version None)
Quarter: 2005Q2

REPORT INFORMATION
  Report Type: 
  Country: None (occurrence: None)
  Receive Date: 20050523
  Receipt Date: 20050511
  Transmission Date: 20051028
  Serious: Yes (Hospitalization, Other)
  Sender: FDA-Public Use
  Company Number: 2005065712

PATIENT
  Age: 42 Year
  Sex: Female

DRUGS (13)
  1. BEXTRA [Suspect]
     Indication: RHEUMATOID ARTHRITIS
     Dosage: 10 MG (10 MG, 1IN 1 D), ORAL
     Route: 048
     Dates: start: 20030101
  2. CELEBREX [Suspect]
     Indication: ARTHRITIS
     Dosage: 200 MG (200 MG, 1IN 1 D), ORAL
     Route: 048
     Dates: start: 19981001, end: 20050421
  3. PSEUDOEPHEDRINE HCL W/GUAIFENESIN (GUAIFENESIN, PSEUDOEPHEDRINE HYDROC [Concomitant]
  4. ZYRTEC [Concomitant]
  5. NASACORT AQ (TRIAMCINOLONE ACETONIDE) [Concomitant]
  6. ALLOPURINOL [Concomitant]
  7. HYDROCHLOROTHIAZIDE [Concomitant]
  8. SYNTHROID [Concomitant]
  9. CRANBERRY (VACCINIUM MACROCARPON) [Concomitant]
  10. VITAMIN C (VITAMIN C) [Concomitant]
  11. IRON (IRON) [Concomitant]
  12. MULTIVITAMINS (MULTIVAMINS) [Concomitant]
  13. ALL OTHER THERAPEUTIC PRODUCTS (ALL OTHER THERAPEUTIC PRODUCTS) [Concomitant]

REACTIONS (8)
  - DRUG EFFECT DECREASED [None]
  - KNEE OPERATION [None]
  - MUSCULOSKELETAL STIFFNESS [None]
  - NEPHROLITHIASIS [None]
  - PAIN [None]
  - RHEUMATOID ARTHRITIS [None]
  - STOMACH DISCOMFORT [None]
  - URINARY TRACT INFECTION [None]
